FAERS Safety Report 8349599-3 (Version None)
Quarter: 2012Q2

REPORT INFORMATION
  Report Type: 
  Country: None (occurrence: None)
  Receive Date: 20120510
  Receipt Date: 20120504
  Transmission Date: 20120825
  Serious: Yes (Hospitalization)
  Sender: FDA-Public Use
  Company Number: PHEH2012US009376

PATIENT
  Age: 79 Year
  Sex: Male

DRUGS (2)
  1. TASIGNA [Suspect]
     Dosage: 300 MG, Q12H
     Route: 048
     Dates: start: 20120423
  2. TASIGNA [Suspect]
     Indication: CHRONIC MYELOID LEUKAEMIA
     Dosage: 300 MG, BID
     Route: 048
     Dates: start: 20120112, end: 20120301

REACTIONS (5)
  - WHITE BLOOD CELL COUNT DECREASED [None]
  - BLOOD GLUCOSE INCREASED [None]
  - LUNG DISORDER [None]
  - ATRIAL FIBRILLATION [None]
  - HAEMOGLOBIN DECREASED [None]
